FAERS Safety Report 19592627 (Version 1)
Quarter: 2021Q3

REPORT INFORMATION
  Report Type: Spontaneous
  Country: CA (occurrence: CA)
  Receive Date: 20210721
  Receipt Date: 20210721
  Transmission Date: 20211014
  Serious: Yes (Disabling, Other)
  Sender: FDA-Public Use
  Company Number: None

PATIENT
  Age: 27 Year
  Sex: Male
  Weight: 83.25 kg

DRUGS (5)
  1. BETNOVATE [Suspect]
     Active Substance: BETAMETHASONE
     Indication: RASH
     Route: 061
     Dates: start: 20111101, end: 20120331
  2. OMEGA 3 OIL [Concomitant]
  3. VENTOLIN [Concomitant]
     Active Substance: ALBUTEROL SULFATE
  4. PREDNISONE. [Suspect]
     Active Substance: PREDNISONE
  5. MULTIVITAMIN [Concomitant]
     Active Substance: VITAMINS

REACTIONS (10)
  - Pruritus [None]
  - Skin exfoliation [None]
  - Skin burning sensation [None]
  - Depression [None]
  - Skin atrophy [None]
  - Skin injury [None]
  - Insomnia [None]
  - Erythema [None]
  - Alopecia [None]
  - Impaired work ability [None]

NARRATIVE: CASE EVENT DATE: 20120401
